FAERS Safety Report 9863905 (Version 1)
Quarter: 2014Q1

REPORT INFORMATION
  Report Type: Spontaneous
  Country: IT (occurrence: IT)
  Receive Date: 20140203
  Receipt Date: 20140203
  Transmission Date: 20141002
  Serious: Yes (Other)
  Sender: FDA-Public Use
  Company Number: IT-ACTAVIS-2014-01508

PATIENT
  Age: 44 Year
  Sex: Female

DRUGS (5)
  1. PACLITAXEL ACTAVIS [Suspect]
     Indication: CHEMOTHERAPY
     Dosage: 130 MG, TOTAL
     Route: 042
     Dates: start: 20140108, end: 20140108
  2. SOLDESAM [Concomitant]
     Dosage: 8 MG/2 ML
  3. TRIMETON                           /00072502/ [Concomitant]
     Dosage: 10 MG/1 ML
  4. PLASIL                             /00041901/ [Concomitant]
     Dosage: 10 MG/2 ML
  5. RANITIDINE HYDROCHLORIDE [Concomitant]

REACTIONS (2)
  - Laryngeal oedema [Recovered/Resolved]
  - Chest discomfort [Recovered/Resolved]
